FAERS Safety Report 9278043 (Version 1)
Quarter: 2013Q2

REPORT INFORMATION
  Report Type: Spontaneous
  Country: DO (occurrence: DO)
  Receive Date: 20130508
  Receipt Date: 20130508
  Transmission Date: 20140414
  Serious: Yes (Death)
  Sender: FDA-Public Use
  Company Number: DO-PFIZER INC-2013139942

PATIENT
  Sex: 0

DRUGS (1)
  1. ZITHROMAX [Suspect]

REACTIONS (2)
  - Death [Fatal]
  - Drug administration error [Unknown]
